FAERS Safety Report 24468429 (Version 2)
Quarter: 2024Q4

REPORT INFORMATION
  Report Type: Spontaneous
  Country: NO (occurrence: NO)
  Receive Date: 20241018
  Receipt Date: 20241106
  Transmission Date: 20250115
  Serious: Yes (Death, Hospitalization, Other)
  Sender: JOHNSON AND JOHNSON
  Company Number: NO-JNJFOC-20241035297

PATIENT
  Age: 77 Year
  Sex: Male

DRUGS (4)
  1. TECVAYLI [Suspect]
     Active Substance: TECLISTAMAB-CQYV
     Indication: Plasma cell myeloma
     Dosage: STEP UP DOSE 1
     Route: 058
     Dates: start: 20240902
  2. TECVAYLI [Suspect]
     Active Substance: TECLISTAMAB-CQYV
     Dosage: STEP UP DOSE 2
     Route: 058
     Dates: start: 20240904
  3. TECVAYLI [Suspect]
     Active Substance: TECLISTAMAB-CQYV
     Dosage: DAY 09; STEP UP DOSE 3
     Route: 058
     Dates: start: 20240910
  4. TECVAYLI [Suspect]
     Active Substance: TECLISTAMAB-CQYV
     Dosage: DAY 22; 4TH DOSE
     Route: 058
     Dates: start: 20240923

REACTIONS (7)
  - Circulatory collapse [Fatal]
  - Immune effector cell-associated neurotoxicity syndrome [Recovered/Resolved]
  - Cytokine release syndrome [Recovering/Resolving]
  - Pneumonia [Unknown]
  - Neutropenia [Unknown]
  - Confusional state [Recovering/Resolving]
  - Aggression [Recovering/Resolving]

NARRATIVE: CASE EVENT DATE: 20240912
